FAERS Safety Report 11772541 (Version 1)
Quarter: 2015Q4

REPORT INFORMATION
  Report Type: Spontaneous
  Country: US (occurrence: US)
  Receive Date: 20151124
  Receipt Date: 20151124
  Transmission Date: 20160304
  Serious: Yes (Other)
  Sender: FDA-Public Use
  Company Number: US-SANOFI-AVENTIS-2010SA023105

PATIENT
  Age: 78 Year
  Sex: Male
  Weight: 79.5 kg

DRUGS (5)
  1. BABY ASPIRIN [Suspect]
     Active Substance: ASPIRIN
     Route: 065
     Dates: start: 1991
  2. PLAVIX [Suspect]
     Active Substance: CLOPIDOGREL BISULFATE
     Indication: MYOCARDIAL INFARCTION
     Route: 048
     Dates: start: 20100315, end: 20100324
  3. CENTRUM SILVER [Concomitant]
     Active Substance: MINERALS\VITAMINS
     Dates: start: 1999
  4. LIPITOR [Concomitant]
     Active Substance: ATORVASTATIN CALCIUM
     Dates: start: 1999
  5. DILTIAZEM [Concomitant]
     Active Substance: DILTIAZEM
     Dates: start: 1999

REACTIONS (4)
  - Urinary bladder haemorrhage [Recovered/Resolved]
  - Penile haemorrhage [Unknown]
  - Atrial fibrillation [Unknown]
  - Conjunctival haemorrhage [Unknown]

NARRATIVE: CASE EVENT DATE: 20100324
